FAERS Safety Report 5221255-X (Version None)
Quarter: 2007Q1

REPORT INFORMATION
  Report Type: 
  Country: None (occurrence: None)
  Receive Date: 20070126
  Receipt Date: 20070116
  Transmission Date: 20070707
  Serious: Yes (Hospitalization, Other)
  Sender: FDA-Public Use
  Company Number: US-PFIZER INC-2005054462

PATIENT
  Sex: Male
  Weight: 103.4 kg

DRUGS (11)
  1. INHALED HUMAN INSULIN [Suspect]
     Indication: DIABETES MELLITUS NON-INSULIN-DEPENDENT
     Dosage: DAILY DOSE:12MG
     Route: 055
     Dates: start: 20030311, end: 20050314
  2. INSULIN GLARGINE [Suspect]
     Indication: DIABETES MELLITUS NON-INSULIN-DEPENDENT
     Route: 058
  3. LEVOTHYROXINE SODIUM [Concomitant]
     Dosage: FREQ:UNKNOWN
     Route: 048
  4. VITAMIN E [Concomitant]
     Dosage: FREQ:UNKNOWN
     Route: 048
  5. ACETAMINOPHEN AND OXYCODONE HCL [Concomitant]
     Dosage: FREQ:UNKNOWN
     Route: 048
  6. FLAXSEED OIL [Concomitant]
     Dosage: FREQ:UNKNOWN
     Route: 048
  7. LOTREL [Concomitant]
     Dosage: FREQ:UNKNOWN
     Route: 048
  8. PRILOSEC [Concomitant]
     Dosage: FREQ:UNKNOWN
     Route: 048
  9. WELCHOL [Concomitant]
     Dosage: FREQ:UNKNOWN
     Route: 048
  10. ZETIA [Concomitant]
     Dosage: FREQ:UNKNOWN
     Route: 048
  11. PLAVIX [Concomitant]
     Dosage: FREQ:UNKNOWN
     Route: 048

REACTIONS (2)
  - GRANULOMA [None]
  - LUNG NEOPLASM [None]
